FAERS Safety Report 9408054 (Version 2)
Quarter: 2013Q3

REPORT INFORMATION
  Report Type: Spontaneous
  Country: US (occurrence: US)
  Receive Date: 20130718
  Receipt Date: 20130902
  Transmission Date: 20140515
  Serious: Yes (Death)
  Sender: FDA-Public Use
  Company Number: US-BRISTOL-MYERS SQUIBB COMPANY-19109339

PATIENT
  Age: 50 Year
  Sex: Male

DRUGS (3)
  1. BARACLUDE [Suspect]
     Indication: HEPATITIS B
     Dosage: LAST DOSE-23MAY13
     Route: 048
     Dates: start: 20130516, end: 20130523
  2. TRUVADA [Concomitant]
  3. RITONAVIR [Concomitant]

REACTIONS (1)
  - Hepatic failure [Fatal]
